FAERS Safety Report 21836047 (Version 2)
Quarter: 2023Q1

REPORT INFORMATION
  Report Type: Report from Study
  Country: US (occurrence: US)
  Receive Date: 20230109
  Receipt Date: 20230310
  Transmission Date: 20230418
  Serious: No
  Sender: FDA-Public Use
  Company Number: US-002147023-NVSC2023US002988

PATIENT
  Sex: Female

DRUGS (2)
  1. LEQVIO [Suspect]
     Active Substance: INCLISIRAN SODIUM
     Indication: Product used for unknown indication
     Dosage: UNK
     Route: 058
     Dates: start: 20221129
  2. LEQVIO [Suspect]
     Active Substance: INCLISIRAN SODIUM
     Dosage: UNK
     Route: 065
     Dates: start: 20230228

REACTIONS (8)
  - Cognitive disorder [Unknown]
  - Blood pressure fluctuation [Unknown]
  - Chest pain [Unknown]
  - Gait inability [Unknown]
  - Lymphadenopathy [Unknown]
  - Stress [Unknown]
  - Back pain [Unknown]
  - Neuralgia [Recovered/Resolved]
